FAERS Safety Report 7406762-3 (Version None)
Quarter: 2011Q2

REPORT INFORMATION
  Report Type: 
  Country: None (occurrence: None)
  Receive Date: 20110411
  Receipt Date: 20110328
  Transmission Date: 20111010
  Serious: Yes (Other)
  Sender: FDA-Public Use
  Company Number: PHHY2011GB25008

PATIENT
  Age: 30 Year
  Sex: Male
  Weight: 73 kg

DRUGS (1)
  1. PENICILLIN V 'TYROL PHARMA' [Suspect]
     Dosage: UNK
     Dates: start: 20110318

REACTIONS (1)
  - OEDEMA [None]
